FAERS Safety Report 24722195 (Version 1)
Quarter: 2024Q4

REPORT INFORMATION
  Report Type: Spontaneous
  Country: CN (occurrence: CN)
  Receive Date: 20241211
  Receipt Date: 20241211
  Transmission Date: 20250115
  Serious: Yes (Other)
  Sender: MERCK
  Company Number: CN-009507513-2412CHN003868

PATIENT
  Age: 60 Year
  Sex: Male

DRUGS (1)
  1. TEMOZOLOMIDE [Suspect]
     Active Substance: TEMOZOLOMIDE
     Dosage: 75 MILLIGRAM/SQ. METER, QD
     Route: 048
     Dates: start: 20240809, end: 20240914

REACTIONS (2)
  - Cancer surgery [Unknown]
  - White matter lesion [Unknown]

NARRATIVE: CASE EVENT DATE: 20241024
